FAERS Safety Report 15298579 (Version 1)
Quarter: 2018Q3

REPORT INFORMATION
  Report Type: Spontaneous
  Country: FR (occurrence: FR)
  Receive Date: 20180820
  Receipt Date: 20180820
  Transmission Date: 20181010
  Serious: Yes (Death, Hospitalization)
  Sender: FDA-Public Use
  Company Number: FR-PURDUE PHARMA-GBR-2016-0040673

PATIENT
  Age: 87 Year
  Sex: Male

DRUGS (12)
  1. DIFFU K [Suspect]
     Active Substance: POTASSIUM CHLORIDE
     Indication: HYPOKALAEMIA
     Dosage: 2400 MG, DAILY
     Route: 048
  2. DUROGESIC [Suspect]
     Active Substance: FENTANYL
     Indication: PAIN
     Dosage: UNK
     Route: 062
     Dates: start: 20140305, end: 20140306
  3. SERESTA [Suspect]
     Active Substance: OXAZEPAM
     Indication: COGNITIVE DISORDER
     Dosage: 25 MG, DAILY
     Route: 048
     Dates: end: 20140306
  4. DOLIPRANE [Concomitant]
     Active Substance: ACETAMINOPHEN
  5. FUMAFER [Concomitant]
     Active Substance: FERROUS FUMARATE
  6. PYOSTACINE [Concomitant]
     Active Substance: PRISTINAMYCIN
     Indication: ERYSIPELAS
     Dosage: 1 G, DAILY
     Route: 048
     Dates: start: 20140301, end: 20140306
  7. COUMADINE [Concomitant]
     Active Substance: WARFARIN SODIUM
     Indication: AORTIC STENOSIS
     Dosage: UNK
     Route: 048
     Dates: end: 20140306
  8. OXYNORMORO [Suspect]
     Active Substance: OXYCODONE HYDROCHLORIDE
     Indication: PAIN
     Dosage: 15 MG, DAILY
     Route: 048
     Dates: start: 20140301, end: 20140306
  9. MOVICOL [Concomitant]
     Active Substance: POLYETHYLENE GLYCOL 3350\POTASSIUM CHLORIDE\SODIUM BICARBONATE\SODIUM CHLORIDE
  10. INIPOMP [Concomitant]
     Active Substance: PANTOPRAZOLE SODIUM
  11. TRIATEC                            /00885601/ [Concomitant]
     Active Substance: RAMIPRIL
  12. LASILIX                            /00032601/ [Concomitant]
     Active Substance: FUROSEMIDE

REACTIONS (4)
  - Hyperkalaemia [Fatal]
  - Coma [Fatal]
  - Somnolence [Fatal]
  - Cyanosis [Fatal]

NARRATIVE: CASE EVENT DATE: 20140306
